FAERS Safety Report 4784334-7 (Version None)
Quarter: 2005Q3

REPORT INFORMATION
  Report Type: 
  Country: None (occurrence: None)
  Receive Date: 20050930
  Receipt Date: 20050922
  Transmission Date: 20060218
  Serious: Yes (Other)
  Sender: FDA-Public Use
  Company Number: PHBS2005NZ13931

PATIENT
  Age: 15 Year
  Sex: Female

DRUGS (2)
  1. ZASTEN [Suspect]
     Dosage: 10 MG/DAY
     Route: 048
  2. BUDESONIDE [Concomitant]

REACTIONS (1)
  - ANGIONEUROTIC OEDEMA [None]
